FAERS Safety Report 10240591 (Version 1)
Quarter: 2014Q2

REPORT INFORMATION
  Report Type: Spontaneous
  Country: US (occurrence: None)
  Receive Date: 20140613
  Receipt Date: 20140613
  Transmission Date: 20141212
  Serious: No
  Sender: FDA-Public Use
  Company Number: None

PATIENT
  Age: 24 Year
  Sex: Female
  Weight: 63.5 kg

DRUGS (1)
  1. LIPODISSOLVE MESOTHERAPY [Suspect]
     Indication: FAT TISSUE INCREASED

REACTIONS (2)
  - Skin disorder [None]
  - Deformity [None]
